FAERS Safety Report 17465655 (Version 1)
Quarter: 2020Q1

REPORT INFORMATION
  Report Type: Spontaneous
  Country: US (occurrence: US)
  Receive Date: 20200227
  Receipt Date: 20200227
  Transmission Date: 20200409
  Serious: Yes (Hospitalization, Other)
  Sender: FDA-Public Use
  Company Number: US-DRREDDYS-USA/USA/20/0120128

PATIENT
  Age: 60 Year
  Sex: Male

DRUGS (5)
  1. FENOFIBRATE CAPSULES [Suspect]
     Active Substance: FENOFIBRATE
     Indication: PRIMARY BILIARY CHOLANGITIS
  2. CHOLESTYRAMINE. [Concomitant]
     Active Substance: CHOLESTYRAMINE
     Indication: CHOLANGITIS SCLEROSING
     Route: 065
  3. FENOFIBRATE CAPSULES [Suspect]
     Active Substance: FENOFIBRATE
     Indication: CHOLANGITIS SCLEROSING
     Route: 065
  4. URSODEOXYCHOLIC ACID [Concomitant]
     Active Substance: URSODIOL
     Indication: CHOLANGITIS SCLEROSING
     Route: 065
  5. URSODEOXYCHOLIC ACID [Concomitant]
     Active Substance: URSODIOL
     Indication: PRIMARY BILIARY CHOLANGITIS

REACTIONS (2)
  - Acute kidney injury [Unknown]
  - Rhabdomyolysis [Unknown]
